FAERS Safety Report 5029744-8 (Version None)
Quarter: 2006Q2

REPORT INFORMATION
  Report Type: 
  Country: None (occurrence: None)
  Receive Date: 20060620
  Receipt Date: 20060608
  Transmission Date: 20061013
  Serious: Yes (Other)
  Sender: FDA-Public Use
  Company Number: US-JNJFOC-20060503287

PATIENT
  Sex: Female
  Weight: 80.29 kg

DRUGS (1)
  1. REMICADE [Suspect]
     Indication: RHEUMATOID ARTHRITIS
     Route: 042

REACTIONS (6)
  - ANAEMIA [None]
  - CATARACT OPERATION [None]
  - CONSTIPATION [None]
  - CYSTITIS [None]
  - DYSKINESIA [None]
  - RASH [None]
